FAERS Safety Report 8184850-4 (Version None)
Quarter: 2012Q1

REPORT INFORMATION
  Report Type: 
  Country: None (occurrence: None)
  Receive Date: 20120305
  Receipt Date: 20120305
  Transmission Date: 20120608
  Serious: Yes (Death, Other)
  Sender: FDA-Public Use
  Company Number: JP-BAYER-201010352BYL

PATIENT
  Age: 73 Year
  Sex: Female
  Weight: 48 kg

DRUGS (11)
  1. ALDACTONE [Concomitant]
     Dosage: 25 MG, QD
     Route: 048
  2. ACETAMINOPHEN [Concomitant]
     Dosage: 400 MG, PRN
     Route: 048
  3. NEXAVAR [Suspect]
     Indication: HEPATIC NEOPLASM MALIGNANT
     Dosage: 400 MG, BID
     Route: 048
     Dates: start: 20100108, end: 20100110
  4. URSO 250 [Concomitant]
     Dosage: 300 MG, QD
     Route: 048
  5. NEXAVAR [Suspect]
     Dosage: 800 MG, QD
     Route: 048
     Dates: start: 20100113, end: 20100119
  6. OMEPRAZOLE [Concomitant]
     Dosage: 20 MG, QD
     Route: 048
  7. NEXAVAR [Suspect]
     Dosage: 400 MG, QD
     Route: 048
     Dates: start: 20100120, end: 20100302
  8. ONEALFA [Concomitant]
     Dosage: 0.5 ?G, QD
     Route: 048
  9. SHAKUYAKUKANZOUTOU [Concomitant]
     Dosage: 2.5 G, QD
     Route: 048
  10. DEXTROMETHORPHAN HYDROBROMIDE [Concomitant]
     Dosage: 45 MG, QD
     Route: 048
     Dates: start: 20100109
  11. ALLEGRA [Concomitant]
     Dosage: 120 MG, QD
     Route: 048
     Dates: start: 20100117

REACTIONS (9)
  - GENERAL PHYSICAL HEALTH DETERIORATION [None]
  - ASPARTATE AMINOTRANSFERASE INCREASED [None]
  - ENCEPHALOPATHY [None]
  - DIZZINESS [None]
  - DECREASED APPETITE [None]
  - PALMAR-PLANTAR ERYTHRODYSAESTHESIA SYNDROME [None]
  - HYPERBILIRUBINAEMIA [None]
  - ALANINE AMINOTRANSFERASE INCREASED [None]
  - HYPERTENSION [None]
